FAERS Safety Report 11186283 (Version 1)
Quarter: 2015Q2

REPORT INFORMATION
  Report Type: Spontaneous
  Country: US (occurrence: US)
  Receive Date: 20150612
  Receipt Date: 20150612
  Transmission Date: 20150821
  Serious: Yes (Hospitalization)
  Sender: FDA-Public Use
  Company Number: US-ASTRAZENECA-2015SE55058

PATIENT
  Age: 1036 Month
  Sex: Female
  Weight: 47.2 kg

DRUGS (15)
  1. CARDIZEM [Concomitant]
     Active Substance: DILTIAZEM HYDROCHLORIDE
     Route: 048
  2. ASPIRIN. [Concomitant]
     Active Substance: ASPIRIN
     Route: 048
  3. ATIVAN [Concomitant]
     Active Substance: LORAZEPAM
     Indication: ANXIETY
     Route: 048
  4. SYMBICORT [Suspect]
     Active Substance: BUDESONIDE\FORMOTEROL FUMARATE DIHYDRATE
     Indication: CHRONIC OBSTRUCTIVE PULMONARY DISEASE
     Dosage: 160/4.5 UG BID 120 INHALATIONS
     Route: 055
     Dates: start: 20150518
  5. IPATROPIUM [Concomitant]
     Dosage: 0.05 MG AND 3 MG AS REQUIRED
     Route: 055
  6. SPIRIVA [Concomitant]
     Active Substance: TIOTROPIUM BROMIDE MONOHYDRATE
  7. DIGOXIN. [Concomitant]
     Active Substance: DIGOXIN
     Route: 048
  8. GUIFENESIN [Concomitant]
     Route: 048
  9. PROTONIX [Concomitant]
     Active Substance: PANTOPRAZOLE SODIUM
     Route: 048
  10. ADVAIR HFA [Concomitant]
     Active Substance: FLUTICASONE PROPIONATE\SALMETEROL XINAFOATE
     Dosage: 230 AND 21 MCG 2 PUFFSTWO TIMES A DAY
     Route: 055
  11. PERICOLACE [Concomitant]
     Indication: CONSTIPATION
     Route: 048
  12. DULCOLAX [Concomitant]
     Active Substance: BISACODYL OR DOCUSATE SODIUM
     Indication: FAECES HARD
     Route: 048
  13. COUMADIN [Concomitant]
     Active Substance: WARFARIN SODIUM
     Route: 048
  14. SENNADOCUSATE [Concomitant]
     Route: 048
  15. LEVOTHYROXINE [Concomitant]
     Active Substance: LEVOTHYROXINE
     Indication: THYROID DISORDER
     Route: 048

REACTIONS (5)
  - Internal haemorrhage [Unknown]
  - Cardiac disorder [Unknown]
  - Joint swelling [Unknown]
  - Dysphonia [Unknown]
  - Respiratory disorder [Unknown]

NARRATIVE: CASE EVENT DATE: 201505
